FAERS Safety Report 15601552 (Version 3)
Quarter: 2019Q1

REPORT INFORMATION
  Report Type: Spontaneous
  Country: US (occurrence: US)
  Receive Date: 20181109
  Receipt Date: 20190307
  Transmission Date: 20190417
  Serious: Yes (Death, Life-Threatening, Other)
  Sender: FDA-Public Use
  Company Number: PHEH2018US047234

PATIENT
  Age: 1 Year
  Sex: Male
  Weight: 13 kg

DRUGS (3)
  1. KYMRIAH [Suspect]
     Active Substance: TISAGENLECLEUCEL
     Indication: ACUTE LYMPHOCYTIC LEUKAEMIA RECURRENT
     Dosage: UNK UNK, ONCE/SINGLE
     Route: 042
     Dates: start: 20180919
  2. KYMRIAH [Suspect]
     Active Substance: TISAGENLECLEUCEL
     Dosage: UNK UNK, ONCE/SINGLE
     Route: 042
     Dates: start: 20180919
  3. KYMRIAH [Suspect]
     Active Substance: TISAGENLECLEUCEL
     Indication: ACUTE LYMPHOCYTIC LEUKAEMIA
     Dosage: 10 ML, ONCE/SINGLE
     Route: 042
     Dates: start: 20180904

REACTIONS (4)
  - Venoocclusive disease [Fatal]
  - Acute respiratory failure [Fatal]
  - Acute lymphocytic leukaemia recurrent [Not Recovered/Not Resolved]
  - Drug ineffective [Unknown]

NARRATIVE: CASE EVENT DATE: 20181101
